FAERS Safety Report 5868629-1 (Version None)
Quarter: 2008Q3

REPORT INFORMATION
  Report Type: 
  Country: None (occurrence: None)
  Receive Date: 20080903
  Receipt Date: 20080826
  Transmission Date: 20090109
  Serious: Yes (Hospitalization, Other)
  Sender: FDA-Public Use
  Company Number: FR-BAYER-200717526GPV

PATIENT
  Age: 52 Year
  Sex: Male
  Weight: 85 kg

DRUGS (4)
  1. IZILOX [Suspect]
     Indication: SINUSITIS
     Route: 065
     Dates: start: 20070906, end: 20070901
  2. OFLOCET [Concomitant]
     Indication: SINUSITIS
  3. PREDNISOLONE [Concomitant]
     Indication: SINUSITIS
  4. DESMODIUM (DESMODIUM ASCENDENS) [Concomitant]
     Indication: DRUG USE FOR UNKNOWN INDICATION
     Route: 065

REACTIONS (9)
  - DEPRESSION [None]
  - HEAD BANGING [None]
  - HEPATITIS [None]
  - NERVOUS SYSTEM DISORDER [None]
  - PARAESTHESIA [None]
  - TENDON PAIN [None]
  - TINNITUS [None]
  - TRANSAMINASES INCREASED [None]
  - WEIGHT DECREASED [None]
